FAERS Safety Report 13908278 (Version 1)
Quarter: 2017Q3

REPORT INFORMATION
  Report Type: Other
  Country: GB (occurrence: GB)
  Receive Date: 20170826
  Receipt Date: 20170826
  Transmission Date: 20171127
  Serious: Yes (Life-Threatening, Hospitalization, Other)
  Sender: FDA-Public Use
  Company Number: GB-INTERNATIONAL MEDICATION SYSTEMS, LIMITED-2025121

PATIENT
  Age: 21 Year
  Sex: Female

DRUGS (3)
  1. EPINEPHRINE PERIPHERAL BOLUSES OF 10-100 MG [Suspect]
     Active Substance: EPINEPHRINE
  2. GLUCAGON. [Concomitant]
     Active Substance: GLUCAGON
  3. PLASMALYTE [Concomitant]
     Active Substance: ELECTROLYTES NOS

REACTIONS (1)
  - Drug ineffective [Recovered/Resolved]
